FAERS Safety Report 15813543 (Version 1)
Quarter: 2019Q1

REPORT INFORMATION
  Report Type: Spontaneous
  Country: US (occurrence: US)
  Receive Date: 20190111
  Receipt Date: 20190111
  Transmission Date: 20190417
  Serious: Yes (Death)
  Sender: FDA-Public Use
  Company Number: None

PATIENT
  Age: 81 Year
  Sex: Female
  Weight: 81.7 kg

DRUGS (2)
  1. ELIQUIS [Suspect]
     Active Substance: APIXABAN
     Indication: DEEP VEIN THROMBOSIS
     Route: 048
  2. ELIQUIS [Suspect]
     Active Substance: APIXABAN
     Indication: PULMONARY EMBOLISM
     Route: 048

REACTIONS (6)
  - Intraventricular haemorrhage [None]
  - Basilar artery aneurysm [None]
  - Hydrocephalus [None]
  - Aphasia [None]
  - Subarachnoid haemorrhage [None]
  - Ruptured cerebral aneurysm [None]

NARRATIVE: CASE EVENT DATE: 20181009
